FAERS Safety Report 8013417 (Version 4)
Quarter: 2012Q4

REPORT INFORMATION
  Report Type: 
  Country: JP (occurrence: JP)
  Receive Date: 20110628
  Receipt Date: 20121227
  Transmission Date: 20130627
  Serious: Yes (Death, Life-Threatening)
  Sender: FDA-Public Use
  Company Number: JP-BAYER-2011-054580

PATIENT
  Age: 68 Year
  Sex: Male
  Weight: 55.78 kg

DRUGS (16)
  1. NEXAVAR [Suspect]
     Indication: CARCINOMA HEPATOCELLULAR
     Dosage: 200 mg, BID
     Route: 048
     Dates: start: 20110616, end: 20110623
  2. KETOPROFEN [Concomitant]
     Dosage: Daily dose 20 mg
     Route: 061
     Dates: start: 20110614
  3. DIOVAN [Concomitant]
     Dosage: Daily dose 40 mg
     Route: 048
  4. AMARYL [Concomitant]
     Dosage: Daily dose 3 mg
     Route: 048
  5. GASTER [Concomitant]
     Dosage: Daily dose 40 mg
     Route: 048
  6. MUCOSTA [Concomitant]
     Dosage: Daily dose 300 mg
     Route: 048
  7. AMLODIN [Concomitant]
     Dosage: Daily dose 25 mg
     Route: 048
  8. GLUCOBAY OD [Concomitant]
     Dosage: Daily dose 150 mg
     Route: 048
  9. VOLTAREN [Concomitant]
     Dosage: Daily dose 50 mg
     Route: 054
     Dates: start: 20110621
  10. PANTOSIN [Concomitant]
     Dosage: Daily dose 3 g
     Route: 048
     Dates: start: 20110630, end: 20110810
  11. MAGNESIUM OXIDE [Concomitant]
     Dosage: Daily dose 2 g
     Route: 048
     Dates: start: 20110630, end: 20110810
  12. BIOFERMIN R [Concomitant]
     Dosage: Daily dose 3 g
     Route: 048
     Dates: start: 20110620, end: 20110626
  13. URSO [Concomitant]
     Dosage: Daily dose 300 mg
     Route: 048
     Dates: start: 20110701, end: 20110810
  14. GLYCERON [Concomitant]
     Dosage: Daily dose 6 DF
     Route: 048
     Dates: start: 20110701, end: 20110810
  15. SPIRONOLACTONE [Concomitant]
     Dosage: Daily dose 50 mg
     Route: 048
     Dates: start: 20110701, end: 20110810
  16. LOXONIN [Concomitant]
     Dosage: Daily dose 180 mg
     Route: 048
     Dates: start: 20110701, end: 20110901

REACTIONS (4)
  - Hepatocellular carcinoma [Fatal]
  - Intra-abdominal haemorrhage [Recovered/Resolved]
  - Pyrexia [Recovering/Resolving]
  - Rash [Recovered/Resolved]
